FAERS Safety Report 6063011-9 (Version None)
Quarter: 2009Q1

REPORT INFORMATION
  Report Type: 
  Country: None (occurrence: None)
  Receive Date: 20090203
  Receipt Date: 20090126
  Transmission Date: 20090719
  Serious: Yes (Other)
  Sender: FDA-Public Use
  Company Number: JP-MERCK-0901USA03134

PATIENT
  Sex: Male

DRUGS (1)
  1. PEPCID [Suspect]
     Route: 048

REACTIONS (1)
  - RENAL CANCER [None]
